FAERS Safety Report 5213567-0 (Version None)
Quarter: 2007Q1

REPORT INFORMATION
  Report Type: 
  Country: None (occurrence: None)
  Receive Date: 20070119
  Receipt Date: 20070112
  Transmission Date: 20070707
  Serious: Yes (Hospitalization)
  Sender: FDA-Public Use
  Company Number: JP-ABBOTT-06P-087-0354376-01

PATIENT
  Sex: Female
  Weight: 61 kg

DRUGS (20)
  1. HUMIRA [Suspect]
     Indication: RHEUMATOID ARTHRITIS
     Route: 058
     Dates: start: 20031226, end: 20061215
  2. METHOTREXATE SODIUM [Concomitant]
     Indication: RHEUMATOID ARTHRITIS
     Route: 048
     Dates: start: 20020610, end: 20030114
  3. METHOTREXATE SODIUM [Concomitant]
     Route: 048
     Dates: start: 20030210, end: 20030211
  4. METHOTREXATE SODIUM [Concomitant]
     Route: 048
     Dates: start: 20030217, end: 20030311
  5. LOXOPROFEN SODIUM [Concomitant]
     Indication: RHEUMATOID ARTHRITIS
     Route: 048
     Dates: end: 20061225
  6. INDOMETHACIN [Concomitant]
     Indication: RHEUMATOID ARTHRITIS
     Route: 061
  7. VITAMINS [Concomitant]
     Indication: VITAMIN SUPPLEMENTATION
     Route: 048
     Dates: start: 20061229, end: 20070105
  8. VITAMINS [Concomitant]
     Dates: start: 20070106
  9. ALOSENN [Concomitant]
     Indication: CONSTIPATION
     Route: 048
     Dates: end: 20061225
  10. AMLODIPINE BESYLATE [Concomitant]
     Indication: HYPERTENSION
     Route: 048
     Dates: start: 20050513
  11. TEPRENONE [Concomitant]
     Indication: PROPHYLAXIS AGAINST GASTROINTESTINAL ULCER
     Route: 048
     Dates: end: 20061225
  12. CHLORAMPHENICOL [Concomitant]
     Indication: VAGINAL INFECTION
     Route: 067
     Dates: start: 20061107, end: 20061205
  13. VOLTAREN [Concomitant]
     Indication: RHEUMATOID ARTHRITIS
     Route: 054
     Dates: start: 20070101, end: 20070101
  14. VOLTAREN [Concomitant]
     Dates: start: 20070102, end: 20070102
  15. VOLTAREN [Concomitant]
     Dates: start: 20070103, end: 20070103
  16. VOLTAREN [Concomitant]
     Dates: start: 20070104, end: 20070104
  17. VOLTAREN [Concomitant]
     Dates: start: 20070105
  18. BROTIZOLAM [Concomitant]
     Indication: INSOMNIA
     Route: 048
     Dates: start: 20070103
  19. ENTOMOL [Concomitant]
     Indication: INTESTINAL FUNCTIONAL DISORDER
     Route: 048
     Dates: start: 20070106
  20. LANSOPRAZOLE [Concomitant]
     Indication: PROPHYLAXIS AGAINST GASTROINTESTINAL ULCER
     Route: 048
     Dates: start: 20070106

REACTIONS (2)
  - PYELONEPHRITIS [None]
  - SEPSIS [None]
